FAERS Safety Report 6640278-7 (Version None)
Quarter: 2010Q1

REPORT INFORMATION
  Report Type: 
  Country: None (occurrence: None)
  Receive Date: 20100303
  Receipt Date: 20091002
  Transmission Date: 20100710
  Serious: Yes (Hospitalization)
  Sender: FDA-Public Use
  Company Number: 660962

PATIENT
  Age: 53 Year
  Sex: Female

DRUGS (4)
  1. BONIVA [Suspect]
     Indication: OSTEOPENIA
     Dosage: INTRAVENOUS
     Route: 042
     Dates: start: 20090930, end: 20090930
  2. NEXIUM [Concomitant]
  3. LIALDA [Concomitant]
  4. LIPOICIN (THIOCTIC ACID) [Concomitant]

REACTIONS (4)
  - INJECTION SITE EXTRAVASATION [None]
  - INJECTION SITE PAIN [None]
  - INJECTION SITE SWELLING [None]
  - OEDEMA PERIPHERAL [None]
